FAERS Safety Report 11350588 (Version 3)
Quarter: 2015Q4

REPORT INFORMATION
  Report Type: Spontaneous
  Country: JP (occurrence: JP)
  Receive Date: 20150807
  Receipt Date: 20151126
  Transmission Date: 20160304
  Serious: Yes (Life-Threatening)
  Sender: FDA-Public Use
  Company Number: JP-009507513-1508JPN000216

PATIENT
  Age: 82 Year
  Sex: Male
  Weight: 73 kg

DRUGS (9)
  1. CANCIDAS [Suspect]
     Active Substance: CASPOFUNGIN ACETATE
     Indication: SYSTEMIC CANDIDA
     Dosage: 50 MG, QD
     Route: 041
     Dates: start: 20140815, end: 20140905
  2. ALBUMINAR [Concomitant]
     Active Substance: ALBUMIN (HUMAN)
     Indication: CIRCULATORY COLLAPSE
     Dosage: 12.5 G, AS OCCASION ARISES
     Route: 051
     Dates: start: 20140812, end: 20140817
  3. ELASPOL [Concomitant]
     Active Substance: SIVELESTAT SODIUM
     Indication: ACUTE RESPIRATORY DISTRESS SYNDROME
     Dosage: 300 MG, QD
     Route: 051
     Dates: start: 20140813, end: 20140930
  4. SOLU-CORTEF [Concomitant]
     Active Substance: HYDROCORTISONE SODIUM SUCCINATE
     Indication: SEPTIC SHOCK
     Dosage: 200 MG, QD
     Route: 051
     Dates: start: 20150814, end: 20150817
  5. CANCIDAS [Suspect]
     Active Substance: CASPOFUNGIN ACETATE
     Indication: SYSTEMIC CANDIDA
     Dosage: 70 MG, QD
     Route: 041
     Dates: start: 20140814, end: 20140814
  6. FINIBAX [Concomitant]
     Active Substance: DORIPENEM MONOHYDRATE
     Indication: INFECTION
     Dosage: 0.5 MG, TID
     Route: 051
     Dates: start: 20140807, end: 20140912
  7. VENOGLOBULIN-IH [Concomitant]
     Indication: INFECTION
     Dosage: 5 G, QD
     Route: 051
     Dates: start: 20140812, end: 20140814
  8. MINOCYCLINE\MINOCYCLINE HYDROCHLORIDE [Concomitant]
     Active Substance: MINOCYCLINE\MINOCYCLINE HYDROCHLORIDE
     Indication: INFECTION
     Dosage: 100 MG, BID
     Route: 051
     Dates: start: 20140812, end: 20140818
  9. PITRESSIN [Concomitant]
     Active Substance: VASOPRESSIN
     Indication: SEPTIC SHOCK
     Dosage: 20 (UNDER 1000 UNIT),QD
     Route: 051
     Dates: start: 20140814, end: 20140815

REACTIONS (2)
  - Cardiac failure [Recovering/Resolving]
  - Circulatory collapse [Recovered/Resolved]

NARRATIVE: CASE EVENT DATE: 20140814
